FAERS Safety Report 18668989 (Version 1)
Quarter: 2020Q4

REPORT INFORMATION
  Report Type: Spontaneous
  Country: US (occurrence: US)
  Receive Date: 20201227
  Receipt Date: 20201227
  Transmission Date: 20210114
  Serious: Yes (Life-Threatening, Disabling, Other)
  Sender: FDA-Public Use
  Company Number: None

PATIENT
  Age: 39 Year
  Sex: Female
  Weight: 78.75 kg

DRUGS (1)
  1. INVEGA SUSTENNA [Suspect]
     Active Substance: PALIPERIDONE PALMITATE
     Indication: PRODUCT USED FOR UNKNOWN INDICATION
     Dates: start: 20150115, end: 20201227

REACTIONS (5)
  - Nasal dryness [None]
  - Dyspnoea [None]
  - Anaemia [None]
  - Memory impairment [None]
  - Menstruation irregular [None]

NARRATIVE: CASE EVENT DATE: 20201226
